FAERS Safety Report 21974805 (Version 1)
Quarter: 2023Q1

REPORT INFORMATION
  Report Type: Spontaneous
  Country: FR (occurrence: FR)
  Receive Date: 20230209
  Receipt Date: 20230209
  Transmission Date: 20230418
  Serious: Yes (Other)
  Sender: FDA-Public Use
  Company Number: FR-ELI_LILLY_AND_COMPANY-FR202302001149

PATIENT
  Sex: Female

DRUGS (3)
  1. LYUMJEV JUNIOR KWIKPEN [Suspect]
     Active Substance: INSULIN LISPRO
     Indication: Diabetes mellitus
     Dosage: UNK, UNKNOWN
     Route: 065
     Dates: start: 2020
  2. LYUMJEV JUNIOR KWIKPEN [Suspect]
     Active Substance: INSULIN LISPRO
     Dosage: UNK, UNKNOWN
     Route: 065
  3. TRESIBA [Concomitant]
     Active Substance: INSULIN DEGLUDEC
     Dosage: UNK, UNKNOWN
     Route: 065

REACTIONS (5)
  - Vascular occlusion [Unknown]
  - Visual impairment [Unknown]
  - Lens disorder [Unknown]
  - Hyperglycaemia [Unknown]
  - Incorrect product administration duration [Unknown]
